FAERS Safety Report 20644853 (Version 7)
Quarter: 2022Q2

REPORT INFORMATION
  Report Type: Report from Study
  Country: CA (occurrence: CA)
  Receive Date: 20220328
  Receipt Date: 20220511
  Transmission Date: 20220720
  Serious: Yes (Other)
  Sender: FDA-Public Use
  Company Number: CA-GILEAD-2022-0566715

PATIENT
  Age: 55 Year
  Sex: Female
  Weight: 82 kg

DRUGS (15)
  1. SACITUZUMAB GOVITECAN [Suspect]
     Active Substance: SACITUZUMAB GOVITECAN
     Indication: Triple negative breast cancer
     Dosage: 800 MG
     Route: 042
     Dates: start: 20220114
  2. SACITUZUMAB GOVITECAN [Suspect]
     Active Substance: SACITUZUMAB GOVITECAN
     Dosage: 600 MG
     Route: 042
     Dates: start: 20220218
  3. SACITUZUMAB GOVITECAN [Suspect]
     Active Substance: SACITUZUMAB GOVITECAN
     Dosage: 722 MG
     Route: 042
     Dates: start: 202203, end: 20220318
  4. SACITUZUMAB GOVITECAN [Suspect]
     Active Substance: SACITUZUMAB GOVITECAN
     Dosage: 722 MG
     Route: 042
     Dates: start: 20220408
  5. DEXAMETHASONE [Concomitant]
     Active Substance: DEXAMETHASONE
     Dosage: 12 MG PRIOR TO TRODELVY
     Route: 048
  6. DEXAMETHASONE [Concomitant]
     Active Substance: DEXAMETHASONE
     Dosage: 12 MG PO (PRE-MEDICATION PRIOR TO TRODELVY)
  7. DEXAMETHASONE [Concomitant]
     Active Substance: DEXAMETHASONE
     Dosage: 12 MG PO (PRE-MEDICATION PRIOR TO TRODELVY)
  8. ONDANSETRON [Concomitant]
     Active Substance: ONDANSETRON
     Dosage: 8 MG PRIOR TO TRODELVY
     Route: 048
  9. ONDANSETRON [Concomitant]
     Active Substance: ONDANSETRON
     Dosage: 8 MG PO (PRE-MEDICATION PRIOR TO TRODELVY)
  10. ONDANSETRON [Concomitant]
     Active Substance: ONDANSETRON
     Dosage: 8 MG PO (PRE-MEDICATION PRIOR TO TRODELVY)
  11. TAXOL [Concomitant]
     Active Substance: PACLITAXEL
  12. GEMCITABINE [Concomitant]
     Active Substance: GEMCITABINE
  13. CISPLATIN [Concomitant]
     Active Substance: CISPLATIN
  14. CARBOPLATIN [Concomitant]
     Active Substance: CARBOPLATIN
  15. BENADRYL [Concomitant]
     Active Substance: DIPHENHYDRAMINE HYDROCHLORIDE
     Dosage: 25 MG PO (PRE-MEDICATION PRIOR TO TRODELVY)

REACTIONS (19)
  - Neutrophil count abnormal [Recovering/Resolving]
  - Neutropenia [Unknown]
  - Diarrhoea [Recovered/Resolved]
  - Weight decreased [Unknown]
  - Rash [Not Recovered/Not Resolved]
  - Candida infection [Unknown]
  - Nasopharyngitis [Unknown]
  - Rash [Unknown]
  - Weight increased [Unknown]
  - Weight decreased [Unknown]
  - Rash [Recovered/Resolved]
  - Limb discomfort [Unknown]
  - Neutrophil count decreased [Unknown]
  - Off label use [Unknown]
  - Inappropriate schedule of product administration [Unknown]
  - Gastric disorder [Recovered/Resolved]
  - Inappropriate schedule of product administration [Unknown]
  - Depressed mood [Recovered/Resolved]
  - Lacrimation increased [Recovered/Resolved]

NARRATIVE: CASE EVENT DATE: 20220101
